FAERS Safety Report 15887365 (Version 2)
Quarter: 2019Q1

REPORT INFORMATION
  Report Type: Spontaneous
  Country: DE (occurrence: DE)
  Receive Date: 20190130
  Receipt Date: 20190225
  Transmission Date: 20190417
  Serious: Yes (Hospitalization, Other)
  Sender: FDA-Public Use
  Company Number: DE-AUROBINDO-AUR-APL-2019-003454

PATIENT

DRUGS (6)
  1. OSPOLOT [Suspect]
     Active Substance: SULTHIAME
     Indication: EPILEPSY
     Dosage: UNK
     Route: 065
     Dates: start: 201712, end: 201801
  2. ORFIRIL [Suspect]
     Active Substance: VALPROATE SODIUM
     Indication: EPILEPSY
     Dosage: 450 MILLIGRAM, TWO TIMES A DAY (450-0-450)
     Route: 048
     Dates: start: 201710
  3. PETNIDAN [Suspect]
     Active Substance: ETHOSUXIMIDE
     Indication: EPILEPSY
     Dosage: UNK
     Route: 065
     Dates: start: 201612
  4. PETNIDAN [Suspect]
     Active Substance: ETHOSUXIMIDE
     Dosage: REDUCED BY 250 MG IN THE EVENING
     Route: 048
     Dates: start: 201801, end: 201807
  5. LAMOTRIGINE. [Suspect]
     Active Substance: LAMOTRIGINE
     Indication: EPILEPSY
     Dosage: UNK, SLOWLY TAPERED OFF
     Route: 065
     Dates: end: 201712
  6. PETNIDAN [Suspect]
     Active Substance: ETHOSUXIMIDE
     Dosage: 1250 MILLIGRAM, ONCE A DAY, 500 MG, 750 MG
     Route: 048
     Dates: start: 201807

REACTIONS (7)
  - Inappropriate schedule of product administration [Recovered/Resolved]
  - Dizziness [Unknown]
  - Seizure [Recovered/Resolved]
  - Drug ineffective [Recovered/Resolved]
  - Epilepsy [Recovered/Resolved]
  - Dyspnoea [Unknown]
  - Abdominal pain [Unknown]

NARRATIVE: CASE EVENT DATE: 201710
